FAERS Safety Report 12707729 (Version 1)
Quarter: 2016Q3

REPORT INFORMATION
  Report Type: Spontaneous
  Country: US (occurrence: US)
  Receive Date: 20160901
  Receipt Date: 20160901
  Transmission Date: 20161109
  Serious: No
  Sender: FDA-Public Use
  Company Number: US-BAYER-2016-168058

PATIENT
  Age: 91 Year
  Sex: Male
  Weight: 68.27 kg

DRUGS (2)
  1. PROBIOTICA [Concomitant]
     Active Substance: PROBIOTICS NOS
  2. MIRALAX [Suspect]
     Active Substance: POLYETHYLENE GLYCOL 3350
     Indication: GASTROINTESTINAL DISORDER
     Dosage: 1/2 - 1/4 A CAPFUL; CONSUMER USED THE PRODUCT FOR MORE THAN 7 DAYS
     Route: 048
     Dates: start: 2014, end: 201608

REACTIONS (2)
  - Product use issue [None]
  - Therapeutic response unexpected [None]
